FAERS Safety Report 16932264 (Version 1)
Quarter: 2019Q4

REPORT INFORMATION
  Report Type: Spontaneous
  Country: DE (occurrence: DE)
  Receive Date: 20191017
  Receipt Date: 20191017
  Transmission Date: 20200122
  Serious: Yes (Hospitalization)
  Sender: FDA-Public Use
  Company Number: DE-JNJFOC-20190813651

PATIENT
  Age: 59 Year
  Sex: Male
  Weight: 89 kg

DRUGS (3)
  1. RIVAROXABAN [Suspect]
     Active Substance: RIVAROXABAN
     Indication: DEEP VEIN THROMBOSIS
     Dosage: 20 MG, QD
     Route: 048
     Dates: start: 2015
  2. ATORVASTATIN [Concomitant]
     Active Substance: ATORVASTATIN
     Dosage: 40 MG, QD
     Dates: start: 201612
  3. RIVAROXABAN [Suspect]
     Active Substance: RIVAROXABAN
     Indication: PERIPHERAL ARTERIAL OCCLUSIVE DISEASE

REACTIONS (8)
  - Thalamus haemorrhage [Recovering/Resolving]
  - Lumbar vertebral fracture [Unknown]
  - Intraventricular haemorrhage [Recovering/Resolving]
  - Pneumothorax [Unknown]
  - Rib fracture [Unknown]
  - Road traffic accident [Unknown]
  - Pulmonary contusion [Unknown]
  - Scapula fracture [Unknown]

NARRATIVE: CASE EVENT DATE: 20190519
